FAERS Safety Report 5120550-2 (Version None)
Quarter: 2006Q4

REPORT INFORMATION
  Report Type: 
  Country: None (occurrence: None)
  Receive Date: 20061002
  Receipt Date: 20060918
  Transmission Date: 20070319
  Serious: Yes (Other)
  Sender: FDA-Public Use
  Company Number: S06-UKI-03931-01

PATIENT
  Sex: Male
  Weight: 2.61 kg

DRUGS (1)
  1. CITALOPRAM HYDROBROMIDE [Suspect]
     Dates: end: 20030709

REACTIONS (3)
  - DRUG EXPOSURE DURING PREGNANCY [None]
  - HYPERBILIRUBINAEMIA NEONATAL [None]
  - PREMATURE BABY [None]
